FAERS Safety Report 4752793-1 (Version None)
Quarter: 2005Q3

REPORT INFORMATION
  Report Type: 
  Country: None (occurrence: None)
  Receive Date: 20050823
  Receipt Date: 20050214
  Transmission Date: 20060218
  Serious: Yes (Other)
  Sender: FDA-Public Use
  Company Number: 2005029443

PATIENT
  Age: 63 Year
  Sex: Female
  Weight: 70.3075 kg

DRUGS (3)
  1. NORVASC [Suspect]
     Indication: HYPERTENSION
     Dosage: 10 MG (10 MG,1 IN 1 D),ORAL
     Route: 048
     Dates: start: 20041111, end: 20050117
  2. LEVOTHYROXINE SODIUM [Concomitant]
  3. MONTELUKAST SODIUM (MONTELUKAST SODIUM) [Concomitant]

REACTIONS (7)
  - DYSPHAGIA [None]
  - HEAD DISCOMFORT [None]
  - MUSCLE TWITCHING [None]
  - MUSCULOSKELETAL STIFFNESS [None]
  - PAIN [None]
  - SPEECH DISORDER [None]
  - TREMOR [None]
